FAERS Safety Report 8560049-4 (Version None)
Quarter: 2012Q3

REPORT INFORMATION
  Report Type: 
  Country: None (occurrence: None)
  Receive Date: 20120802
  Receipt Date: 20120724
  Transmission Date: 20120928
  Serious: Yes (Other)
  Sender: FDA-Public Use
  Company Number: GB-ABBOTT-12P-167-0915693-00

PATIENT
  Sex: Female
  Weight: 74 kg

DRUGS (10)
  1. ACETAMINOPHEN [Concomitant]
     Indication: PAIN
  2. SIMVASTATIN [Concomitant]
     Indication: BLOOD CHOLESTEROL
     Dosage: ONE AT NIGHT
     Route: 048
  3. ADCAL D3 [Concomitant]
     Indication: OSTEOPOROSIS
     Dosage: 1-1 DAYS OD
  4. LANSOPRAZOLE [Concomitant]
     Dosage: ONE TWICE A DAY
     Route: 048
  5. ALBUTEROL SULATE [Concomitant]
     Indication: CHRONIC OBSTRUCTIVE PULMONARY DISEASE
     Dosage: BD
  6. HUMIRA [Suspect]
     Indication: RHEUMATOID ARTHRITIS
     Route: 058
     Dates: start: 20120301
  7. LANSOPRAZOLE [Concomitant]
     Indication: GASTROOESOPHAGEAL REFLUX DISEASE
  8. UNSPECIFIED ANTIMALARIAL [Concomitant]
     Indication: PRODUCT USED FOR UNKNOWN INDICATION
     Dates: start: 20120308
  9. ALENDRONATE SODIUM [Concomitant]
     Indication: OSTEOPOROSIS
  10. CLENIL 100 [Concomitant]
     Indication: CHRONIC OBSTRUCTIVE PULMONARY DISEASE
     Dosage: BD

REACTIONS (1)
  - ORAL MUCOSAL BLISTERING [None]
